FAERS Safety Report 11850298 (Version 3)
Quarter: 2016Q1

REPORT INFORMATION
  Report Type: Spontaneous
  Country: US (occurrence: US)
  Receive Date: 20151218
  Receipt Date: 20160331
  Transmission Date: 20160526
  Serious: Yes (Death, Other)
  Sender: FDA-Public Use
  Company Number: US-JNJFOC-20151213228

PATIENT
  Sex: Female
  Weight: 50 kg

DRUGS (13)
  1. GUAIFENESIN. [Concomitant]
     Active Substance: GUAIFENESIN
     Indication: COUGH
     Dosage: AS NEEDED
     Route: 048
     Dates: start: 20150312
  2. HYCODAN [Concomitant]
     Active Substance: HOMATROPINE METHYLBROMIDE\HYDROCODONE BITARTRATE
     Indication: COUGH
     Dosage: AS NEEDED
  3. ATARAX [Concomitant]
     Active Substance: HYDROXYZINE\HYDROXYZINE HYDROCHLORIDE
     Indication: PRURITUS
     Dosage: AS NEEDED
     Route: 048
     Dates: start: 20150417
  4. ALBUTEROL HFA [Concomitant]
     Active Substance: ALBUTEROL SULFATE
     Indication: WHEEZING
     Dosage: INHALE 1 TO 2 PUFFS BY MOUTH EVERY 6 HOURS AS NEEDED
     Dates: start: 20150312
  5. AMLODIPINE [Concomitant]
     Active Substance: AMLODIPINE BESYLATE
     Route: 048
  6. TRIAMCINOLONE [Concomitant]
     Active Substance: TRIAMCINOLONE
     Dosage: APPLY 2 TIMES PER DAY FOR 3 WEEKS, THEN 1 TIME PER DAY FOR 2 WEEKS, THEN STOP
     Dates: start: 20150223
  7. VALACYCLOVIR [Concomitant]
     Active Substance: VALACYCLOVIR HYDROCHLORIDE
     Dates: start: 20130623
  8. IMBRUVICA [Suspect]
     Active Substance: IBRUTINIB
     Indication: CHRONIC LYMPHOCYTIC LEUKAEMIA
     Route: 048
     Dates: start: 20151019, end: 20151110
  9. CLONAZEPAM. [Concomitant]
     Active Substance: CLONAZEPAM
     Indication: ANXIETY
     Dosage: AS NEEDED
     Route: 048
  10. ATORVASTATIN [Concomitant]
     Active Substance: ATORVASTATIN
     Dates: start: 20111117
  11. BECLOMETHASONE [Concomitant]
     Active Substance: BECLOMETHASONE
     Dosage: INHALE 2 PUFFS BY MOUTH TWO TIMES DAILY
  12. ASPIRIN. [Concomitant]
     Active Substance: ASPIRIN
     Route: 048
  13. DELTASON [Concomitant]
     Active Substance: PREDNISONE
     Dosage: TAKE 4 TABLETS FOR 5 DAYS THEN 3 TABS FOR 5 DAYS THEN 2 TABS FOR 5 DAYS
     Route: 048

REACTIONS (10)
  - Cardiopulmonary failure [Fatal]
  - Rash pruritic [Recovering/Resolving]
  - White blood cell count increased [Unknown]
  - Myalgia [Unknown]
  - Insomnia [Unknown]
  - Granuloma [Recovering/Resolving]
  - Herpes zoster [Unknown]
  - Oropharyngeal pain [Recovering/Resolving]
  - Herpes dermatitis [Recovered/Resolved]
  - Arthralgia [Unknown]

NARRATIVE: CASE EVENT DATE: 2015
